FAERS Safety Report 5598094-3 (Version None)
Quarter: 2008Q1

REPORT INFORMATION
  Report Type: 
  Country: None (occurrence: None)
  Receive Date: 20080122
  Receipt Date: 20080115
  Transmission Date: 20080703
  Serious: Yes (Other)
  Sender: FDA-Public Use
  Company Number: PHHY2008JP00718

PATIENT
  Age: 57 Year
  Sex: Female

DRUGS (1)
  1. LUDIOMIL [Suspect]
     Dosage: 10MG/DAY
     Route: 048
     Dates: start: 20060501, end: 20060501

REACTIONS (2)
  - LIVER DISORDER [None]
  - TOXIC EPIDERMAL NECROLYSIS [None]
